FAERS Safety Report 7049661-1 (Version None)
Quarter: 2010Q4

REPORT INFORMATION
  Report Type: 
  Country: None (occurrence: None)
  Receive Date: 20101018
  Receipt Date: 20101012
  Transmission Date: 20110411
  Serious: Yes (Hospitalization)
  Sender: FDA-Public Use
  Company Number: A0886120A

PATIENT
  Age: 65 Year
  Sex: Male

DRUGS (3)
  1. AVODART [Suspect]
     Indication: BENIGN PROSTATIC HYPERPLASIA
     Dosage: 1CAP PER DAY
     Route: 048
     Dates: start: 20070101
  2. UNKNOWN MEDICATION [Concomitant]
  3. UNKNOWN MEDICATION [Concomitant]

REACTIONS (7)
  - EJACULATION DISORDER [None]
  - ROTATOR CUFF REPAIR [None]
  - ROTATOR CUFF SYNDROME [None]
  - SEMEN VOLUME DECREASED [None]
  - TENDON INJURY [None]
  - TENDON OPERATION [None]
  - TENDONITIS [None]
